FAERS Safety Report 7824756-0 (Version None)
Quarter: 2011Q4

REPORT INFORMATION
  Report Type: 
  Country: None (occurrence: None)
  Receive Date: 20111019
  Receipt Date: 20111014
  Transmission Date: 20120403
  Serious: Yes (Death)
  Sender: FDA-Public Use
  Company Number: PHHY2011PE90877

PATIENT
  Sex: Female

DRUGS (2)
  1. EXFORGE [Suspect]
     Dates: start: 20110316
  2. SYNVISC [Suspect]
     Dates: start: 20110927

REACTIONS (1)
  - CARDIAC ARREST [None]
